FAERS Safety Report 5233091-9 (Version None)
Quarter: 2007Q1

REPORT INFORMATION
  Report Type: 
  Country: None (occurrence: None)
  Receive Date: 20061204
  Receipt Date: 20061018
  Transmission Date: 20070707
  Serious: No
  Sender: FDA-Public Use
  Company Number: 2006-BP-12254BP

PATIENT
  Age: 80 Year
  Sex: Male

DRUGS (9)
  1. SPIRIVA [Suspect]
     Indication: CHRONIC OBSTRUCTIVE PULMONARY DISEASE
     Dosage: 18 MCG (18 MCG,1 IN 1 D),IH
     Dates: start: 20061001, end: 20061016
  2. LASIX [Concomitant]
  3. FLOMAX (MORNIFLUMATE) [Concomitant]
  4. CALCITRIOL [Concomitant]
  5. PLAVIX [Concomitant]
  6. ATENOLOL [Concomitant]
  7. NORVASC [Concomitant]
  8. COMBIVENT (COMBIVENT /01261001/) [Concomitant]
  9. ADVAIR (SERETIDE /01420901/) [Concomitant]

REACTIONS (3)
  - ERYTHEMA [None]
  - EYE PRURITUS [None]
  - SWELLING FACE [None]
